FAERS Safety Report 13480618 (Version 2)
Quarter: 2017Q2

REPORT INFORMATION
  Report Type: Spontaneous
  Country: DK (occurrence: DK)
  Receive Date: 20170425
  Receipt Date: 20170426
  Transmission Date: 20170830
  Serious: Yes (Other)
  Sender: FDA-Public Use
  Company Number: DK-JNJFOC-20170423372

PATIENT
  Sex: Female
  Weight: 71 kg

DRUGS (3)
  1. METHOTREXATE. [Concomitant]
     Active Substance: METHOTREXATE
     Route: 048
     Dates: start: 20051219
  2. REMICADE [Suspect]
     Active Substance: INFLIXIMAB
     Indication: RHEUMATOID ARTHRITIS
     Route: 042
     Dates: start: 20160518, end: 20160920
  3. FOLIMET [Concomitant]
     Route: 048
     Dates: start: 20051219

REACTIONS (1)
  - Lung neoplasm malignant [Not Recovered/Not Resolved]
